FAERS Safety Report 9280435 (Version 2)
Quarter: 2013Q3

REPORT INFORMATION
  Report Type: Spontaneous
  Country: FR (occurrence: FR)
  Receive Date: 20130509
  Receipt Date: 20130722
  Transmission Date: 20140515
  Serious: Yes (Other)
  Sender: FDA-Public Use
  Company Number: PHHY2013FR044983

PATIENT
  Age: 50 Year
  Sex: Male

DRUGS (3)
  1. RIMACTAN SANDOZ [Suspect]
     Indication: OSTEOMYELITIS
     Dosage: 600 MG, BID
     Route: 048
     Dates: start: 20130414, end: 20130420
  2. RIMACTAN SANDOZ [Suspect]
     Route: 048
     Dates: start: 20130613
  3. TAVANIC [Suspect]
     Indication: OSTEOMYELITIS
     Dosage: 500 MG, BID
     Route: 048
     Dates: start: 20130414, end: 20130420

REACTIONS (4)
  - Tendon disorder [Recovered/Resolved]
  - Monarthritis [Recovered/Resolved]
  - Tendon pain [Recovered/Resolved]
  - Musculoskeletal pain [Recovered/Resolved]
